FAERS Safety Report 10055674 (Version 1)
Quarter: 2014Q2

REPORT INFORMATION
  Report Type: Spontaneous
  Country: US (occurrence: None)
  Receive Date: 20140402
  Receipt Date: 20140402
  Transmission Date: 20141212
  Serious: Yes (Other)
  Sender: FDA-Public Use
  Company Number: None

PATIENT
  Age: 17 Year
  Sex: Female

DRUGS (1)
  1. HUMIRA [Suspect]
     Indication: CROHN^S DISEASE
     Dosage: 40MG, EVERY OTHER WEEK, SUBCUTANEOUS
     Route: 058
     Dates: start: 20140124, end: 20140401

REACTIONS (2)
  - Injection site hypersensitivity [None]
  - Injection site dermatitis [None]
